FAERS Safety Report 10181850 (Version 1)
Quarter: 2014Q2

REPORT INFORMATION
  Report Type: Spontaneous
  Country: US (occurrence: US)
  Receive Date: 20140519
  Receipt Date: 20140519
  Transmission Date: 20141212
  Serious: Yes (Other)
  Sender: FDA-Public Use
  Company Number: US-ABBVIE-14P-163-1236416-00

PATIENT
  Sex: 0

DRUGS (1)
  1. HUMIRA [Suspect]
     Indication: PRODUCT USED FOR UNKNOWN INDICATION

REACTIONS (5)
  - Antiphospholipid antibodies positive [Unknown]
  - Antinuclear antibody positive [Unknown]
  - DNA antibody positive [Unknown]
  - Lupus-like syndrome [Unknown]
  - Arthralgia [Unknown]
